FAERS Safety Report 5526752-5 (Version None)
Quarter: 2007Q4

REPORT INFORMATION
  Report Type: 
  Country: None (occurrence: None)
  Receive Date: 20071127
  Receipt Date: 20071114
  Transmission Date: 20080405
  Serious: No
  Sender: FDA-Public Use
  Company Number: US-ASTRAZENECA-2007UW26551

PATIENT
  Age: 32 Year
  Sex: Male

DRUGS (2)
  1. SEROQUEL [Suspect]
     Indication: SCHIZOPHRENIA, DISORGANISED TYPE
     Route: 048
  2. SEROQUEL [Suspect]
     Route: 048

REACTIONS (2)
  - PSYCHIATRIC DECOMPENSATION [None]
  - WHITE BLOOD CELL COUNT DECREASED [None]
